FAERS Safety Report 7535469-7 (Version None)
Quarter: 2011Q2

REPORT INFORMATION
  Report Type: 
  Country: None (occurrence: None)
  Receive Date: 20110609
  Receipt Date: 20080701
  Transmission Date: 20111010
  Serious: Yes (Death)
  Sender: FDA-Public Use
  Company Number: PHHY2008LK11792

PATIENT

DRUGS (2)
  1. GLEEVEC [Suspect]
     Dosage: 800 MG
  2. GLEEVEC [Suspect]
     Indication: CHRONIC MYELOID LEUKAEMIA
     Dosage: 400 MG

REACTIONS (2)
  - DEATH [None]
  - DRUG INEFFECTIVE [None]
